FAERS Safety Report 4511421-0 (Version None)
Quarter: 2004Q4

REPORT INFORMATION
  Report Type: 
  Country: None (occurrence: None)
  Receive Date: 20041129
  Receipt Date: 20040806
  Transmission Date: 20050328
  Serious: Yes (Hospitalization)
  Sender: FDA-Public Use
  Company Number: US-BRISTOL-MYERS SQUIBB COMPANY-12662250

PATIENT
  Age: 51 Year
  Sex: Male
  Weight: 115 kg

DRUGS (8)
  1. ABILIFY [Suspect]
     Indication: PSYCHOTIC DISORDER
     Dosage: 10 MG/DAY FROM 28-APR-04 TO 06-MAY-04, INCREASED TO 20 MG/DAY FROM 06-MAY TO 08-MAY-04
     Route: 048
     Dates: start: 20040428, end: 20040508
  2. BUPROPION HCL [Concomitant]
  3. CELEXA [Concomitant]
  4. ZYPREXA [Concomitant]
  5. HYDROCHLOROTHIAZIDE [Concomitant]
  6. ATIVAN [Concomitant]
  7. METOPROLOL [Concomitant]
  8. TRAZODONE HCL [Concomitant]

REACTIONS (1)
  - HALLUCINATION [None]
